FAERS Safety Report 12559032 (Version 2)
Quarter: 2016Q4

REPORT INFORMATION
  Report Type: Spontaneous
  Country: US (occurrence: US)
  Receive Date: 20160715
  Receipt Date: 20161012
  Transmission Date: 20170207
  Serious: No
  Sender: FDA-Public Use
  Company Number: US-TEVA-660371USA

PATIENT
  Age: 44 Year
  Sex: Female

DRUGS (7)
  1. MIDODRINE [Concomitant]
     Active Substance: MIDODRINE
  2. VALIUM [Concomitant]
     Active Substance: DIAZEPAM
  3. DILAUDID [Concomitant]
     Active Substance: HYDROMORPHONE HYDROCHLORIDE
  4. ZECUITY [Suspect]
     Active Substance: SUMATRIPTAN SUCCINATE
     Indication: MIGRAINE
     Route: 062
     Dates: start: 20160512, end: 20160512
  5. AMBIEN [Concomitant]
     Active Substance: ZOLPIDEM TARTRATE
  6. ACEBUTOLOL [Concomitant]
     Active Substance: ACEBUTOLOL
  7. TRAZODONE [Concomitant]
     Active Substance: TRAZODONE HYDROCHLORIDE

REACTIONS (7)
  - Application site paraesthesia [Recovered/Resolved]
  - Product adhesion issue [Unknown]
  - Drug effect incomplete [Unknown]
  - Circumstance or information capable of leading to medication error [Unknown]
  - Application site discolouration [Recovered/Resolved]
  - Application site pain [Recovered/Resolved]
  - Device battery issue [Unknown]

NARRATIVE: CASE EVENT DATE: 20160512
